FAERS Safety Report 15688889 (Version 1)
Quarter: 2018Q4

REPORT INFORMATION
  Report Type: Spontaneous
  Country: CH (occurrence: CH)
  Receive Date: 20181205
  Receipt Date: 20181205
  Transmission Date: 20190205
  Serious: Yes (Hospitalization, Other)
  Sender: FDA-Public Use
  Company Number: CH-ASTRAZENECA-2018SF56629

PATIENT

DRUGS (2)
  1. SEQUASE XR [Suspect]
     Active Substance: QUETIAPINE FUMARATE
     Route: 048
  2. SEQUASE XR [Suspect]
     Active Substance: QUETIAPINE FUMARATE
     Route: 048

REACTIONS (2)
  - Hip fracture [Unknown]
  - Body mass index increased [Unknown]
